FAERS Safety Report 19471148 (Version 1)
Quarter: 2021Q2

REPORT INFORMATION
  Report Type: Spontaneous
  Country: CA (occurrence: CA)
  Receive Date: 20210628
  Receipt Date: 20210628
  Transmission Date: 20210717
  Serious: No
  Sender: FDA-Public Use
  Company Number: CA-APC-202100167

PATIENT
  Age: 76 Year
  Sex: Male

DRUGS (1)
  1. NATESTO [Suspect]
     Active Substance: TESTOSTERONE
     Indication: BLOOD TESTOSTERONE DECREASED
     Dosage: ONE PUMP PER NOSTRIL ONCE A DAY
     Route: 045
     Dates: start: 20180222, end: 20180723

REACTIONS (11)
  - Nasal odour [Unknown]
  - Upper respiratory fungal infection [Not Recovered/Not Resolved]
  - Nasal cavity mass [Unknown]
  - Tinnitus [Not Recovered/Not Resolved]
  - Dyspnoea [Unknown]
  - Headache [Unknown]
  - Ear pain [Unknown]
  - Sinus disorder [Not Recovered/Not Resolved]
  - Rhinorrhoea [Unknown]
  - Prostatitis [Unknown]
  - Occipital neuralgia [Unknown]

NARRATIVE: CASE EVENT DATE: 201805
